FAERS Safety Report 20322050 (Version 1)
Quarter: 2022Q1

REPORT INFORMATION
  Report Type: Spontaneous
  Country: RU (occurrence: RU)
  Receive Date: 20220111
  Receipt Date: 20220111
  Transmission Date: 20220423
  Serious: Yes (Other)
  Sender: FDA-Public Use
  Company Number: RU-ABBVIE-22K-251-4225060-00

PATIENT
  Age: 23 Year
  Sex: Female

DRUGS (3)
  1. VALPROATE SODIUM [Suspect]
     Active Substance: VALPROATE SODIUM
     Indication: Epilepsy
     Dosage: 333.3/145 MG
     Route: 048
  2. PHENAZEPAM [Concomitant]
     Active Substance: PHENAZEPAM
     Indication: Product used for unknown indication
  3. VALPROATE SODIUM [Concomitant]
     Active Substance: VALPROATE SODIUM
     Indication: Product used for unknown indication

REACTIONS (4)
  - Suspected counterfeit product [Unknown]
  - Seizure [Recovered/Resolved]
  - Drug ineffective [Unknown]
  - Product residue present [Unknown]
